FAERS Safety Report 8482382-7 (Version None)
Quarter: 2012Q3

REPORT INFORMATION
  Report Type: 
  Country: None (occurrence: None)
  Receive Date: 20120702
  Receipt Date: 20120628
  Transmission Date: 20120928
  Serious: No
  Sender: FDA-Public Use
  Company Number: US-TEVA-346070USA

PATIENT
  Sex: Female
  Weight: 65.83 kg

DRUGS (3)
  1. PLAN B ONE-STEP [Suspect]
     Indication: POST COITAL CONTRACEPTION
     Dosage: 1.5 MILLIGRAM;
     Route: 048
     Dates: start: 20120628, end: 20120628
  2. SEROQUEL [Concomitant]
     Indication: INSOMNIA
     Dosage: 100 MILLIGRAM;
  3. IMPLANON [Concomitant]
     Indication: CONTRACEPTION
     Dates: start: 20080101

REACTIONS (1)
  - PELVIC PAIN [None]
